FAERS Safety Report 19847328 (Version 1)
Quarter: 2021Q3

REPORT INFORMATION
  Report Type: Report from Study
  Country: IT (occurrence: IT)
  Receive Date: 20210917
  Receipt Date: 20210917
  Transmission Date: 20211014
  Serious: Yes (Other)
  Sender: FDA-Public Use
  Company Number: IT-MYLANLABS-2021M1062174

PATIENT
  Age: 66 Year
  Sex: Female

DRUGS (7)
  1. MUSCORIL [Concomitant]
     Active Substance: THIOCOLCHICOSIDE
     Dosage: UNK
  2. ATORVASTATIN [Concomitant]
     Active Substance: ATORVASTATIN
     Dosage: UNK
  3. EXPOSE [Concomitant]
     Active Substance: EPERISONE HYDROCHLORIDE
     Dosage: UNK
  4. TARGIN [Concomitant]
     Active Substance: NALOXONE HYDROCHLORIDE\OXYCODONE HYDROCHLORIDE
     Dosage: UNK
  5. SERTRALINE [Suspect]
     Active Substance: SERTRALINE HYDROCHLORIDE
     Indication: PRODUCT USED FOR UNKNOWN INDICATION
     Dosage: UNK
     Route: 048
     Dates: start: 20210410, end: 20210410
  6. EUTIROX [Concomitant]
     Active Substance: LEVOTHYROXINE SODIUM
     Dosage: UNK
  7. ORAMORPH [Concomitant]
     Active Substance: MORPHINE SULFATE
     Dosage: UNK

REACTIONS (6)
  - Asthenia [Recovering/Resolving]
  - Vomiting [Recovering/Resolving]
  - Chest discomfort [Recovering/Resolving]
  - Hyperhidrosis [Recovering/Resolving]
  - Dysarthria [Recovering/Resolving]
  - Cold sweat [Recovering/Resolving]

NARRATIVE: CASE EVENT DATE: 20210410
